FAERS Safety Report 7951630-1 (Version None)
Quarter: 2011Q4

REPORT INFORMATION
  Report Type: 
  Country: None (occurrence: None)
  Receive Date: 20111201
  Receipt Date: 20111125
  Transmission Date: 20120403
  Serious: Yes (Hospitalization, Disabling)
  Sender: FDA-Public Use
  Company Number: DE-ROCHE-750671

PATIENT
  Age: 41 Year
  Sex: Female
  Weight: 87 kg

DRUGS (2)
  1. ACTEMRA [Suspect]
     Indication: RHEUMATOID ARTHRITIS
     Route: 042
  2. PREDNISOLONE [Concomitant]
     Indication: RHEUMATOID ARTHRITIS

REACTIONS (4)
  - PNEUMONIA PRIMARY ATYPICAL [None]
  - IMPAIRED HEALING [None]
  - DYSPNOEA [None]
  - ABSCESS [None]
